FAERS Safety Report 16515671 (Version 1)
Quarter: 2019Q3

REPORT INFORMATION
  Report Type: Spontaneous
  Country: US (occurrence: US)
  Receive Date: 20190702
  Receipt Date: 20190702
  Transmission Date: 20191004
  Serious: Yes (Hospitalization)
  Sender: FDA-Public Use
  Company Number: None

PATIENT
  Age: 61 Year
  Sex: Female

DRUGS (2)
  1. PREDNISONE. [Concomitant]
     Active Substance: PREDNISONE
  2. ACTEMRA [Suspect]
     Active Substance: TOCILIZUMAB
     Indication: ARTERITIS
     Dosage: ?          OTHER FREQUENCY:WEEKLY FOR 4 WEEKS;?
     Route: 058

REACTIONS (5)
  - Weight increased [None]
  - Hyperthyroidism [None]
  - Dyspnoea [None]
  - Swelling [None]
  - Aortic aneurysm [None]

NARRATIVE: CASE EVENT DATE: 20190701
